FAERS Safety Report 9666070 (Version 1)
Quarter: 2013Q4

REPORT INFORMATION
  Report Type: Spontaneous
  Country: KR (occurrence: KR)
  Receive Date: 20131104
  Receipt Date: 20131104
  Transmission Date: 20140711
  Serious: Yes (Other)
  Sender: FDA-Public Use
  Company Number: KR-BAYER-2013-130136

PATIENT
  Age: 73 Year
  Sex: Male

DRUGS (4)
  1. NEXAVAR [Suspect]
     Indication: METASTASES TO LUNG
     Dosage: 400 MG/DAY
     Route: 048
     Dates: start: 20081001, end: 201003
  2. NEXAVAR [Suspect]
     Indication: HEPATOCELLULAR CARCINOMA
     Dosage: 200 MG/DAY
     Route: 048
     Dates: start: 201003, end: 201203
  3. NEXAVAR [Suspect]
     Indication: METASTASES TO LUNG
     Dosage: 400 MG/DAY
     Route: 048
     Dates: start: 2012, end: 2012
  4. NEXAVAR [Suspect]
     Indication: METASTASES TO LUNG
     Dosage: 800 MG/DAY
     Route: 048
     Dates: start: 201207, end: 201209

REACTIONS (2)
  - Hepatic cancer stage IV [None]
  - Non-small cell lung cancer [None]
